FAERS Safety Report 5398498-8 (Version None)
Quarter: 2007Q3

REPORT INFORMATION
  Report Type: 
  Country: None (occurrence: None)
  Receive Date: 20070726
  Receipt Date: 20070124
  Transmission Date: 20080115
  Serious: No
  Sender: FDA-Public Use
  Company Number: US-AMGEN-KDL209413

PATIENT
  Sex: Female
  Weight: 68.1 kg

DRUGS (4)
  1. PROCRIT [Suspect]
     Indication: ANAEMIA
     Dates: start: 20051206
  2. COUMADIN [Concomitant]
     Route: 048
     Dates: start: 20051101
  3. SLOW-FE [Concomitant]
     Dates: start: 20051101
  4. UNSPECIFIED MEDICATION [Concomitant]

REACTIONS (3)
  - HEADACHE [None]
  - MYALGIA [None]
  - SERUM FERRITIN DECREASED [None]
